FAERS Safety Report 7584262-8 (Version None)
Quarter: 2011Q2

REPORT INFORMATION
  Report Type: 
  Country: None (occurrence: None)
  Receive Date: 20110630
  Receipt Date: 20110624
  Transmission Date: 20111010
  Serious: Yes (Other)
  Sender: FDA-Public Use
  Company Number: US-SANOFI-AVENTIS-2011SA040829

PATIENT
  Age: 84 Year
  Sex: Male

DRUGS (7)
  1. ASPIRIN [Suspect]
     Route: 048
  2. ZANTAC [Concomitant]
     Dosage: 1 TO 2 AS NEEDED
  3. PLAVIX [Suspect]
     Route: 048
     Dates: end: 20110617
  4. CARAFATE [Concomitant]
     Dosage: 2 TO 3 TEASPOONS BY MOUTH FOUR TIMES DAILY
  5. DONNATAL [Concomitant]
  6. FENTANYL [Concomitant]
     Dosage: BEFORE MEALS AND AT BEDTIME
     Route: 048
  7. NEXIUM [Concomitant]

REACTIONS (10)
  - ULCER HAEMORRHAGE [None]
  - DYSPEPSIA [None]
  - CONTUSION [None]
  - DIZZINESS [None]
  - WEIGHT DECREASED [None]
  - REGURGITATION [None]
  - MULTIPLE FRACTURES [None]
  - DECREASED APPETITE [None]
  - NAUSEA [None]
  - FALL [None]
